FAERS Safety Report 16974699 (Version 1)
Quarter: 2019Q4

REPORT INFORMATION
  Report Type: Spontaneous
  Country: US (occurrence: US)
  Receive Date: 20191030
  Receipt Date: 20191030
  Transmission Date: 20200122
  Serious: No
  Sender: FDA-Public Use
  Company Number: US-CELLTRION INC.-2019US023481

PATIENT

DRUGS (1)
  1. INFLECTRA [Suspect]
     Active Substance: INFLIXIMAB-DYYB
     Indication: CROHN^S DISEASE
     Dosage: 5 MG / KG IV EVERY 8 WEEKS FOR 6 CYCLES; EQUALS 300 MG PER TREATMENT
     Route: 042
     Dates: start: 201810

REACTIONS (3)
  - Overdose [Unknown]
  - Product storage error [Unknown]
  - Stomatitis [Unknown]
